FAERS Safety Report 7329917-5 (Version None)
Quarter: 2011Q1

REPORT INFORMATION
  Report Type: 
  Country: None (occurrence: None)
  Receive Date: 20110303
  Receipt Date: 20110301
  Transmission Date: 20110831
  Serious: Yes (Hospitalization)
  Sender: FDA-Public Use
  Company Number: JP-PFIZER INC-2011044821

PATIENT
  Age: 63 Year
  Sex: Female

DRUGS (10)
  1. LANTUS [Concomitant]
     Dosage: UNK
     Dates: start: 20090124
  2. CALBLOCK [Concomitant]
     Dosage: 16 MG/DAY
     Route: 048
     Dates: start: 20101216
  3. ACTOS [Concomitant]
     Dosage: 30 MG/DAY
     Route: 048
     Dates: start: 20101216
  4. EPADEL [Concomitant]
     Dosage: 1200 MG/DAY
     Route: 048
     Dates: start: 20110301
  5. VOGLIBOSE [Concomitant]
     Dosage: 0.9 MG/DAY
     Route: 048
  6. IRBESARTAN [Suspect]
     Dosage: 50 MG DAILY
     Route: 048
     Dates: start: 20091126
  7. EPALRESTAT [Concomitant]
     Dosage: 150 MG/DAY
     Route: 048
     Dates: start: 20100523
  8. LYRICA [Suspect]
     Indication: DIABETIC NEUROPATHY
     Dosage: 75 MG DAILY
     Route: 048
     Dates: start: 20110301
  9. PRAVASTATIN SODIUM [Suspect]
     Dosage: 10 MG DAILY
     Route: 048
     Dates: start: 20091027
  10. METHYCOBAL [Concomitant]
     Dosage: 1.5 MG/DAY
     Route: 048
     Dates: start: 20101216

REACTIONS (3)
  - LOSS OF CONSCIOUSNESS [None]
  - BRAIN CONTUSION [None]
  - DIZZINESS [None]
